FAERS Safety Report 9423185 (Version 1)
Quarter: 2013Q3

REPORT INFORMATION
  Report Type: Spontaneous
  Country: US (occurrence: US)
  Receive Date: 20130726
  Receipt Date: 20130726
  Transmission Date: 20140515
  Serious: Yes (Other)
  Sender: FDA-Public Use
  Company Number: US-TEVA-421195USA

PATIENT
  Age: 21 Year
  Sex: Female
  Weight: 62.2 kg

DRUGS (2)
  1. PARAGARD 380A [Suspect]
     Indication: CONTRACEPTION
     Dates: start: 20130711, end: 20130719
  2. ADVAIR [Concomitant]
     Indication: ASTHMA

REACTIONS (1)
  - Device dislocation [Recovered/Resolved]
